FAERS Safety Report 4851515-3 (Version None)
Quarter: 2005Q4

REPORT INFORMATION
  Report Type: 
  Country: None (occurrence: None)
  Receive Date: 20051212
  Receipt Date: 20050929
  Transmission Date: 20060501
  Serious: Yes (Other)
  Sender: FDA-Public Use
  Company Number: GB-ROCHE-419793

PATIENT
  Age: 65 Year
  Sex: Female
  Weight: 101.6 kg

DRUGS (5)
  1. XENICAL [Suspect]
     Indication: OBESITY
     Route: 048
     Dates: start: 20050908, end: 20050929
  2. BUMETANIDE [Concomitant]
     Route: 048
     Dates: start: 19950615
  3. LANSOPRAZOLE [Concomitant]
     Indication: DUODENAL ULCER
     Route: 048
     Dates: start: 19950615
  4. THYROXINE [Concomitant]
     Route: 048
     Dates: start: 20050615
  5. SIMVASTATIN [Concomitant]
     Route: 048
     Dates: start: 20050515

REACTIONS (1)
  - RECTAL HAEMORRHAGE [None]
